FAERS Safety Report 23512400 (Version 1)
Quarter: 2024Q1

REPORT INFORMATION
  Report Type: Spontaneous
  Country: CN (occurrence: CN)
  Receive Date: 20240212
  Receipt Date: 20240212
  Transmission Date: 20240410
  Serious: Yes (Life-Threatening)
  Sender: FDA-Public Use
  Company Number: CN-BEIGENE-BGN-2024-002026

PATIENT
  Age: 64 Year
  Sex: Male
  Weight: 75 kg

DRUGS (6)
  1. TISLELIZUMAB [Suspect]
     Active Substance: TISLELIZUMAB
     Indication: Lung neoplasm malignant
     Dosage: 200 MG ROUTE OF ADMIN (FREE TEXT): INTRAVENOUS DRIP
     Route: 065
     Dates: start: 20240104, end: 20240201
  2. CARBOPLATIN [Suspect]
     Active Substance: CARBOPLATIN
     Indication: Lung neoplasm malignant
     Dosage: 550 MG ROUTE OF ADMIN (FREE TEXT): INTRAVENOUS DRIP
     Route: 065
     Dates: start: 20240104, end: 20240201
  3. PEMETREXED [Suspect]
     Active Substance: PEMETREXED
     Indication: Product used for unknown indication
     Dosage: 950 MG (INJECTION) ROUTE OF ADMIN (FREE TEXT): INTRAVENOUS DRIP
     Route: 065
     Dates: start: 20240104, end: 20240201
  4. XGEVA [Suspect]
     Active Substance: DENOSUMAB
     Indication: Lung neoplasm malignant
     Dosage: 120 MG
     Route: 058
     Dates: start: 20240104, end: 20240201
  5. DEXTROSE [Concomitant]
     Active Substance: DEXTROSE\DEXTROSE MONOHYDRATE
     Indication: Vehicle solution use
     Dosage: 500 ML ROUTE OF ADMIN (FREE TEXT): INTRAVENOUS DRIP
     Route: 065
     Dates: start: 20240104
  6. SODIUM CHLORIDE [Concomitant]
     Active Substance: SODIUM CHLORIDE
     Indication: Vehicle solution use
     Dosage: 100 ML ROUTE OF ADMIN (FREE TEXT): INTRAVENOUS DRIP
     Route: 065
     Dates: start: 20240104

REACTIONS (1)
  - Myelosuppression [Recovering/Resolving]

NARRATIVE: CASE EVENT DATE: 20240201
